FAERS Safety Report 22010084 (Version 2)
Quarter: 2023Q1

REPORT INFORMATION
  Report Type: Spontaneous
  Country: US (occurrence: US)
  Receive Date: 20230220
  Receipt Date: 20230221
  Transmission Date: 20230418
  Serious: Yes (Other)
  Sender: FDA-Public Use
  Company Number: US-JNJFOC-20230224019

PATIENT
  Age: 53 Year
  Sex: Female
  Weight: 99.880 kg

DRUGS (3)
  1. INVEGA SUSTENNA [Suspect]
     Active Substance: PALIPERIDONE PALMITATE
     Indication: Hallucination, auditory
     Route: 030
     Dates: start: 2011
  2. INVEGA SUSTENNA [Suspect]
     Active Substance: PALIPERIDONE PALMITATE
  3. INVEGA SUSTENNA [Suspect]
     Active Substance: PALIPERIDONE PALMITATE

REACTIONS (4)
  - Hallucination, auditory [Unknown]
  - Product dose omission issue [Unknown]
  - Insomnia [Unknown]
  - Depression [Unknown]

NARRATIVE: CASE EVENT DATE: 20230124
